FAERS Safety Report 4293069-9 (Version None)
Quarter: 2004Q1

REPORT INFORMATION
  Report Type: 
  Country: None (occurrence: None)
  Receive Date: 20040210
  Receipt Date: 20040129
  Transmission Date: 20041129
  Serious: Yes (Other)
  Sender: FDA-Public Use
  Company Number: FR-JNJFOC-20040101915

PATIENT
  Age: 21 Year
  Sex: Male
  Weight: 60 kg

DRUGS (2)
  1. REMICADE [Suspect]
     Indication: CROHN'S DISEASE
     Dosage: 300 MG, INTRAVENOUS
     Route: 042
     Dates: start: 20031017
  2. METHOTREXATE [Concomitant]

REACTIONS (2)
  - ANAPHYLACTOID REACTION [None]
  - DRUG HYPERSENSITIVITY [None]
